FAERS Safety Report 4829572-X (Version None)
Quarter: 2005Q4

REPORT INFORMATION
  Report Type: 
  Country: None (occurrence: None)
  Receive Date: 20051116
  Receipt Date: 20050425
  Transmission Date: 20060501
  Serious: Yes (Hospitalization, Other)
  Sender: FDA-Public Use
  Company Number: FRWYE612025APR05

PATIENT
  Sex: Male
  Weight: 125 kg

DRUGS (1)
  1. ENBREL [Suspect]
     Indication: RHEUMATOID ARTHRITIS
     Route: 058
     Dates: start: 20020328, end: 20050301

REACTIONS (4)
  - ABDOMINAL HAEMATOMA [None]
  - ABDOMINAL STRANGULATED HERNIA [None]
  - ABDOMINAL WALL ABSCESS [None]
  - PHLEBITIS [None]
